FAERS Safety Report 9455288 (Version 2)
Quarter: 2013Q4

REPORT INFORMATION
  Report Type: Spontaneous
  Country: IT (occurrence: IT)
  Receive Date: 20130813
  Receipt Date: 20131022
  Transmission Date: 20140711
  Serious: Yes (Hospitalization)
  Sender: FDA-Public Use
  Company Number: IT-RANBAXY-2013R1-72161

PATIENT
  Age: 1 Year
  Sex: Female
  Weight: 9 kg

DRUGS (1)
  1. AMOXICILLIN [Suspect]
     Indication: BRONCHITIS
     Dosage: 10ML, DAILY
     Route: 048
     Dates: start: 20130423, end: 20130425

REACTIONS (2)
  - Urticaria [Recovered/Resolved]
  - Localised oedema [Recovered/Resolved]
